FAERS Safety Report 6473849-1 (Version None)
Quarter: 2009Q4

REPORT INFORMATION
  Report Type: 
  Country: None (occurrence: None)
  Receive Date: 20091204
  Receipt Date: 20091125
  Transmission Date: 20100525
  Serious: Yes (Other)
  Sender: FDA-Public Use
  Company Number: US-BAYER-200941307NA

PATIENT
  Age: 63 Year

DRUGS (2)
  1. NEXAVAR [Suspect]
     Indication: HEPATIC NEOPLASM MALIGNANT
     Route: 048
     Dates: start: 20091112, end: 20091123
  2. LISINOPRIL [Concomitant]
     Dates: start: 20091120

REACTIONS (2)
  - RASH [None]
  - RASH GENERALISED [None]
